FAERS Safety Report 5921158-9 (Version None)
Quarter: 2008Q4

REPORT INFORMATION
  Report Type: 
  Country: None (occurrence: None)
  Receive Date: 20081016
  Receipt Date: 20081006
  Transmission Date: 20090506
  Serious: Yes (Hospitalization, Other)
  Sender: FDA-Public Use
  Company Number: US-ELI_LILLY_AND_COMPANY-US200809006114

PATIENT
  Sex: Female

DRUGS (6)
  1. CYMBALTA [Suspect]
     Indication: STRESS
     Dosage: 30 MG, UNK
     Dates: start: 20080924, end: 20080101
  2. DARVOCET [Concomitant]
  3. ANTIBIOTICS [Concomitant]
  4. COUGH AND COLD PREPARATIONS [Concomitant]
  5. VITAMIN D [Concomitant]
     Indication: OSTEOPOROSIS
  6. ALPRAZOLAM [Concomitant]
     Indication: NERVOUSNESS

REACTIONS (14)
  - ABDOMINAL PAIN UPPER [None]
  - CHEST PAIN [None]
  - CHROMATURIA [None]
  - DISORIENTATION [None]
  - DYSPNOEA [None]
  - EJECTION FRACTION DECREASED [None]
  - FATIGUE [None]
  - HEART RATE INCREASED [None]
  - HYPERHIDROSIS [None]
  - JAUNDICE [None]
  - MYOCARDIAL INFARCTION [None]
  - PNEUMONIA [None]
  - TREMOR [None]
  - WHITE BLOOD CELL COUNT ABNORMAL [None]
